FAERS Safety Report 15484280 (Version 1)
Quarter: 2018Q4

REPORT INFORMATION
  Report Type: Spontaneous
  Country: US (occurrence: US)
  Receive Date: 20181010
  Receipt Date: 20181010
  Transmission Date: 20190205
  Serious: Yes (Other)
  Sender: FDA-Public Use
  Company Number: None

PATIENT
  Age: 5 Year
  Sex: Female
  Weight: 24 kg

DRUGS (1)
  1. ALBUMIN [Suspect]
     Active Substance: ALBUMIN HUMAN
     Indication: PLASMAPHERESIS
     Route: 042
     Dates: start: 20181008, end: 20181008

REACTIONS (4)
  - Staphylococcus test positive [None]
  - Pyrexia [None]
  - Hypotension [None]
  - Livedo reticularis [None]

NARRATIVE: CASE EVENT DATE: 20181008
